FAERS Safety Report 6925538-4 (Version None)
Quarter: 2010Q3

REPORT INFORMATION
  Report Type: 
  Country: None (occurrence: None)
  Receive Date: 20100816
  Receipt Date: 20100806
  Transmission Date: 20110219
  Serious: Yes (Hospitalization)
  Sender: FDA-Public Use
  Company Number: NL-ROCHE-719968

PATIENT
  Sex: Male

DRUGS (4)
  1. PEGASYS [Suspect]
     Indication: PRODUCT USED FOR UNKNOWN INDICATION
     Dosage: DOSE: 180UG FORM: UNKNOWN.
     Route: 058
     Dates: start: 20070901
  2. PEGASYS [Suspect]
     Dosage: DOSE: 180UG FORM: UNKNOWN , LAST DOSE PRIOR TO SAE 26 JULY 2010.
     Route: 058
     Dates: start: 20100401, end: 20100804
  3. COPEGUS [Suspect]
     Indication: PRODUCT USED FOR UNKNOWN INDICATION
     Dosage: FORM: UNKNOWN. .
     Route: 048
     Dates: start: 20070901
  4. COPEGUS [Suspect]
     Dosage: FORM: UNKNOWN. LAST DOSE PRIOR TO SAE 26 JULY 2010
     Route: 048
     Dates: start: 20100401, end: 20100804

REACTIONS (21)
  - ABDOMINAL DISTENSION [None]
  - ANAEMIA [None]
  - BACK PAIN [None]
  - CHILLS [None]
  - CONTUSION [None]
  - DECREASED APPETITE [None]
  - DISTURBANCE IN ATTENTION [None]
  - DRY SKIN [None]
  - DYSPNOEA [None]
  - EPISTAXIS [None]
  - FATIGUE [None]
  - HEADACHE [None]
  - NAUSEA [None]
  - OEDEMA PERIPHERAL [None]
  - ORAL CANDIDIASIS [None]
  - PRURITUS [None]
  - ROSACEA [None]
  - SKIN DISCOLOURATION [None]
  - TREMOR [None]
  - URINARY RETENTION [None]
  - WEIGHT INCREASED [None]
